FAERS Safety Report 14246500 (Version 3)
Quarter: 2018Q1

REPORT INFORMATION
  Report Type: Spontaneous
  Country: FR (occurrence: FR)
  Receive Date: 20171204
  Receipt Date: 20180119
  Transmission Date: 20180508
  Serious: Yes (Hospitalization)
  Sender: FDA-Public Use
  Company Number: FR-CONCORDIA PHARMACEUTICALS INC.-GSH201712-006556

PATIENT
  Age: 28 Year
  Sex: Female

DRUGS (11)
  1. PLAQUENIL [Suspect]
     Active Substance: HYDROXYCHLOROQUINE SULFATE
     Indication: RHEUMATIC DISORDER
     Route: 048
     Dates: end: 20130603
  2. PREVISCAN (FLUINDIONE) [Suspect]
     Active Substance: FLUINDIONE
     Indication: THROMBOSIS PROPHYLAXIS
     Route: 048
     Dates: start: 201305, end: 201306
  3. ALDACTONE [Concomitant]
     Active Substance: SPIRONOLACTONE
  4. LASILIX [Concomitant]
     Active Substance: FUROSEMIDE
  5. TAVANIC [Suspect]
     Active Substance: LEVOFLOXACIN
     Indication: OSTEITIS
     Route: 048
     Dates: start: 20130506, end: 20130530
  6. PLAQUENIL [Suspect]
     Active Substance: HYDROXYCHLOROQUINE SULFATE
     Route: 048
     Dates: end: 20130603
  7. PROCORALAN [Suspect]
     Active Substance: IVABRADINE
     Indication: CARDIAC FAILURE
     Route: 048
     Dates: start: 201305, end: 20130529
  8. CERAZETTE [Concomitant]
     Active Substance: DESOGESTREL
  9. BACTRIM [Suspect]
     Active Substance: SULFAMETHOXAZOLE\TRIMETHOPRIM
     Indication: OSTEITIS
     Route: 048
     Dates: start: 20130506, end: 20130530
  10. TRIATEC [Concomitant]
     Active Substance: RAMIPRIL
  11. SPECIAFOLDINE [Concomitant]
     Active Substance: FOLIC ACID

REACTIONS (2)
  - Rash erythematous [Recovered/Resolved]
  - Angioedema [Recovered/Resolved]

NARRATIVE: CASE EVENT DATE: 20130527
